FAERS Safety Report 23513365 (Version 1)
Quarter: 2024Q1

REPORT INFORMATION
  Report Type: Spontaneous
  Country: US (occurrence: None)
  Receive Date: 20240210
  Receipt Date: 20240210
  Transmission Date: 20240409
  Serious: Yes (Hospitalization)
  Sender: FDA-Public Use
  Company Number: None

PATIENT
  Sex: Male
  Weight: 84.4 kg

DRUGS (4)
  1. CYCLOPHOSPHAMIDE [Suspect]
     Active Substance: CYCLOPHOSPHAMIDE
     Dates: start: 20240202
  2. METHOTREXATE [Suspect]
     Active Substance: METHOTREXATE
     Dates: end: 20240131
  3. PONATINIB [Suspect]
     Active Substance: PONATINIB
     Dates: end: 20240207
  4. PREDNISONE [Suspect]
     Active Substance: PREDNISONE

REACTIONS (10)
  - Colitis [None]
  - Febrile neutropenia [None]
  - Abdominal pain [None]
  - Diarrhoea [None]
  - Nausea [None]
  - Chills [None]
  - Vomiting [None]
  - Decreased appetite [None]
  - Headache [None]
  - Therapy interrupted [None]

NARRATIVE: CASE EVENT DATE: 20240208
